FAERS Safety Report 15230692 (Version 5)
Quarter: 2019Q4

REPORT INFORMATION
  Report Type: Spontaneous
  Country: US (occurrence: US)
  Receive Date: 20180802
  Receipt Date: 20191223
  Transmission Date: 20200122
  Serious: No
  Sender: FDA-Public Use
  Company Number: US-SA-2018SA208082

PATIENT
  Age: 67 Year
  Sex: Male

DRUGS (7)
  1. HYDROXYCHLOROQUINE [Concomitant]
     Active Substance: HYDROXYCHLOROQUINE
  2. DUPIXENT [Suspect]
     Active Substance: DUPILUMAB
     Dosage: 300 MG, QOW
     Route: 058
     Dates: start: 201904
  3. CICLOPIROX. [Concomitant]
     Active Substance: CICLOPIROX
  4. KETOCONAZOLE. [Concomitant]
     Active Substance: KETOCONAZOLE
  5. DUPIXENT [Suspect]
     Active Substance: DUPILUMAB
     Indication: DERMATITIS ATOPIC
     Dosage: 300 MG, QOW
     Route: 058
     Dates: start: 20180628
  6. ELIQUIS [Concomitant]
     Active Substance: APIXABAN
  7. SIMVASTATIN. [Concomitant]
     Active Substance: SIMVASTATIN

REACTIONS (8)
  - Sinus disorder [Unknown]
  - Limb discomfort [Unknown]
  - Headache [Not Recovered/Not Resolved]
  - Malaise [Unknown]
  - Pruritus [Unknown]
  - Dermatitis atopic [Not Recovered/Not Resolved]
  - Blood alkaline phosphatase increased [Unknown]
  - Rash [Unknown]
